FAERS Safety Report 14879923 (Version 1)
Quarter: 2018Q2

REPORT INFORMATION
  Report Type: Spontaneous
  Country: BG (occurrence: BG)
  Receive Date: 20180511
  Receipt Date: 20180511
  Transmission Date: 20180711
  Serious: Yes (Life-Threatening, Hospitalization, Other)
  Sender: FDA-Public Use
  Company Number: PHHY2018BG028753

PATIENT
  Age: 25 Year
  Sex: Male

DRUGS (8)
  1. CIPROFLOXACIN. [Suspect]
     Active Substance: CIPROFLOXACIN
     Indication: PRODUCT USED FOR UNKNOWN INDICATION
     Route: 065
  2. CEFOPERAZONE [Suspect]
     Active Substance: CEFOPERAZONE
     Indication: COUGH
  3. CEFOPERAZONE [Suspect]
     Active Substance: CEFOPERAZONE
     Indication: CHEST PAIN
  4. CEFUROXIME. [Suspect]
     Active Substance: CEFUROXIME
     Indication: CHEST PAIN
  5. CEFOPERAZONE [Suspect]
     Active Substance: CEFOPERAZONE
     Indication: CHILLS
     Route: 042
  6. CEFUROXIME. [Suspect]
     Active Substance: CEFUROXIME
     Indication: PYREXIA
     Route: 065
  7. CEFUROXIME. [Suspect]
     Active Substance: CEFUROXIME
     Indication: CHILLS
  8. CEFUROXIME. [Suspect]
     Active Substance: CEFUROXIME
     Indication: COUGH

REACTIONS (14)
  - Polyuria [Recovering/Resolving]
  - Necrosis [Recovering/Resolving]
  - Condition aggravated [Recovering/Resolving]
  - Stevens-Johnson syndrome [Recovered/Resolved]
  - Tachycardia [Recovering/Resolving]
  - Conjunctivitis [Recovering/Resolving]
  - Skin exfoliation [Recovering/Resolving]
  - Toxic epidermal necrolysis [Recovered/Resolved]
  - Hepatomegaly [Recovering/Resolving]
  - Pain [Recovering/Resolving]
  - Skin erosion [Recovering/Resolving]
  - Blister [Recovering/Resolving]
  - Oral mucosa erosion [Recovering/Resolving]
  - Pneumonia [Recovering/Resolving]

NARRATIVE: CASE EVENT DATE: 201204
